FAERS Safety Report 13872817 (Version 4)
Quarter: 2018Q1

REPORT INFORMATION
  Report Type: Report from Study
  Country: US (occurrence: US)
  Receive Date: 20170816
  Receipt Date: 20180110
  Transmission Date: 20180508
  Serious: Yes (Other)
  Sender: FDA-Public Use
  Company Number: PHEH2017US025726

PATIENT
  Sex: Female

DRUGS (3)
  1. SABRIL [Concomitant]
     Active Substance: VIGABATRIN
     Indication: PRODUCT USED FOR UNKNOWN INDICATION
     Dosage: BEING TAPERED OFF
     Route: 065
  2. AFINITOR [Suspect]
     Active Substance: EVEROLIMUS
     Indication: ASTROCYTOMA, LOW GRADE
     Dosage: 12.5 MG, QD
     Route: 048
     Dates: start: 20161201
  3. AFINITOR [Suspect]
     Active Substance: EVEROLIMUS
     Dosage: 15 MG, UNK
     Route: 048

REACTIONS (3)
  - Drug level decreased [Unknown]
  - Arthropod bite [Unknown]
  - Retinal degeneration [Unknown]
